FAERS Safety Report 12561015 (Version 1)
Quarter: 2016Q3

REPORT INFORMATION
  Report Type: Spontaneous
  Country: IT (occurrence: IT)
  Receive Date: 20160715
  Receipt Date: 20160715
  Transmission Date: 20161109
  Serious: Yes (Other)
  Sender: FDA-Public Use
  Company Number: IT-BAYER-2016-124910

PATIENT
  Sex: Female

DRUGS (2)
  1. MIRENA [Suspect]
     Active Substance: LEVONORGESTREL
     Dosage: 20 MG/24HR, CONT
     Route: 015
     Dates: start: 201204
  2. OMALIZUMAB [Suspect]
     Active Substance: OMALIZUMAB
     Indication: MULTIPLE ALLERGIES
     Dosage: UNK, OM
     Dates: start: 201604

REACTIONS (4)
  - Drug interaction [None]
  - Uterine haemorrhage [None]
  - Vaginal haemorrhage [None]
  - Amenorrhoea [None]

NARRATIVE: CASE EVENT DATE: 201604
